FAERS Safety Report 6212777-3 (Version None)
Quarter: 2009Q2

REPORT INFORMATION
  Report Type: 
  Country: None (occurrence: None)
  Receive Date: 20090603
  Receipt Date: 20090529
  Transmission Date: 20091009
  Serious: Yes (Other)
  Sender: FDA-Public Use
  Company Number: US-JNJFOC-20090600552

PATIENT
  Age: 52 Year
  Sex: Female
  Weight: 81.65 kg

DRUGS (8)
  1. LEVAQUIN [Suspect]
     Route: 048
  2. LEVAQUIN [Suspect]
     Indication: BRONCHITIS
     Route: 048
  3. SYNTHROID [Concomitant]
     Indication: HYPERTHYROIDISM
     Route: 048
  4. ZESTORETIC [Concomitant]
     Indication: HYPERTENSION
     Route: 048
  5. ADVAIR HFA [Concomitant]
     Indication: ASTHMA
     Route: 055
  6. AMBIEN [Concomitant]
     Indication: SLEEP DISORDER
     Route: 048
  7. ALBUTEROL [Concomitant]
     Indication: ASTHMA
     Route: 055
  8. VIVELLE-DOT [Concomitant]
     Indication: HORMONE REPLACEMENT THERAPY
     Route: 065

REACTIONS (7)
  - ARTHRALGIA [None]
  - BONE PAIN [None]
  - BURNING SENSATION [None]
  - DISORIENTATION [None]
  - DRY MOUTH [None]
  - HEART RATE INCREASED [None]
  - PYREXIA [None]
